FAERS Safety Report 17971824 (Version 2)
Quarter: 2020Q3

REPORT INFORMATION
  Report Type: Report from Study
  Country: US (occurrence: US)
  Receive Date: 20200701
  Receipt Date: 20200819
  Transmission Date: 20201103
  Serious: Yes (Hospitalization)
  Sender: FDA-Public Use
  Company Number: US-ACTELION-A-NJ2020-202367

PATIENT
  Age: 90 Year
  Sex: Female

DRUGS (17)
  1. MAGNESIUM [Concomitant]
     Active Substance: MAGNESIUM
  2. ELIQUIS [Concomitant]
     Active Substance: APIXABAN
  3. POTASSIUM [Concomitant]
     Active Substance: POTASSIUM
  4. UPTRAVI [Suspect]
     Active Substance: SELEXIPAG
     Dosage: 400 MCG QAM, 200 MCG QPM
     Route: 048
  5. TYVASO [Concomitant]
     Active Substance: TREPROSTINIL
  6. TYLENOL [Concomitant]
     Active Substance: ACETAMINOPHEN
  7. UPTRAVI [Suspect]
     Active Substance: SELEXIPAG
     Indication: PULMONARY ARTERIAL HYPERTENSION
     Dosage: 200 MCG, BID
     Route: 048
     Dates: start: 20200206, end: 202003
  8. ATORVASTATIN [Concomitant]
     Active Substance: ATORVASTATIN
  9. SILDENAFIL. [Concomitant]
     Active Substance: SILDENAFIL
  10. PRESERVISION [Concomitant]
     Active Substance: MINERALS\VITAMINS
  11. MULTIVITAMINS [VITAMINS NOS] [Concomitant]
     Active Substance: VITAMINS
  12. OPSUMIT [Suspect]
     Active Substance: MACITENTAN
     Indication: PULMONARY ARTERIAL HYPERTENSION
     Dosage: 10 MG, QD
     Route: 048
     Dates: start: 20200606
  13. LASIX [Concomitant]
     Active Substance: FUROSEMIDE
  14. CALCIUM [Concomitant]
     Active Substance: CALCIUM
  15. DIGOXIN. [Concomitant]
     Active Substance: DIGOXIN
  16. ATENOLOL. [Concomitant]
     Active Substance: ATENOLOL
  17. IRON [Concomitant]
     Active Substance: IRON

REACTIONS (7)
  - Fall [Unknown]
  - Hospitalisation [Unknown]
  - Diarrhoea [Unknown]
  - Blood pressure systolic decreased [Not Recovered/Not Resolved]
  - Upper limb fracture [Unknown]
  - Headache [Unknown]
  - Pain [Not Recovered/Not Resolved]

NARRATIVE: CASE EVENT DATE: 202002
